FAERS Safety Report 9356100 (Version 1)
Quarter: 2013Q2

REPORT INFORMATION
  Report Type: Spontaneous
  Country: GB (occurrence: None)
  Receive Date: 20130614
  Receipt Date: 20130614
  Transmission Date: 20140414
  Serious: Yes (Disabling)
  Sender: FDA-Public Use
  Company Number: AUR-APL-2013-04819

PATIENT
  Age: 63 Year
  Sex: Male
  Weight: 125 kg

DRUGS (16)
  1. AMLODIPINE (AMLODIPINE) [Suspect]
     Indication: PRODUCT USED FOR UNKNOWN INDICATION
     Dates: start: 20130206
  2. ASPIRIN (ACETYLSALICYLIC ACID) [Concomitant]
  3. ATENOLOL (ATENOLOL) [Concomitant]
  4. DOXAZOSIN (DOXAZOSIN) [Concomitant]
  5. FLUCLOXACILLIN (FLUCLOXACILLIN (FLUCLOXACILLIN) [Concomitant]
  6. GABAPENTIN (GABAPENTIN) [Concomitant]
  7. GLICLAZIDE (GLICLAZIDE) [Concomitant]
  8. METFORMIN (METFORMIN) [Concomitant]
  9. METRONIDAZOLE (METRONIDAZOLE) [Concomitant]
  10. MIRTAZAPINE (MIRTAZAPINE) [Concomitant]
  11. NOVOMIX (NOVOMIX) [Concomitant]
  12. PARACETAMOL (PARACETAMOL) [Concomitant]
  13. RAMIPRIL (RAMIPRIL) [Concomitant]
  14. SIMVASTATIN (SIMVASTATIN) [Concomitant]
  15. THIAMINE (THIAMINE) [Concomitant]
  16. VITAMIN B COMPLEX (VITAMIN B COMPLEX) [Concomitant]

REACTIONS (3)
  - Anxiety [None]
  - Palpitations [None]
  - Panic attack [None]
